FAERS Safety Report 25274995 (Version 2)
Quarter: 2025Q2

REPORT INFORMATION
  Report Type: Spontaneous
  Country: US (occurrence: US)
  Receive Date: 20250506
  Receipt Date: 20250604
  Transmission Date: 20250716
  Serious: No
  Sender: PFIZER
  Company Number: US-PFIZER INC-202500091422

PATIENT
  Age: 14 Year
  Sex: Male
  Weight: 38.1 kg

DRUGS (2)
  1. GENOTROPIN [Suspect]
     Active Substance: SOMATROPIN
     Indication: Growth hormone deficiency
     Dosage: 1.9, ONCE A DAY AT NIGHT AND ALTERNATE BETWEEN 1.8 AND 2.0
  2. GENOTROPIN [Suspect]
     Active Substance: SOMATROPIN
     Dosage: 1.9, ONCE A DAY AT NIGHT AND ALTERNATE BETWEEN 1.8 AND 2.0

REACTIONS (4)
  - Drug dose omission by device [Unknown]
  - Device breakage [Unknown]
  - Device information output issue [Unknown]
  - Device power source issue [Unknown]
